FAERS Safety Report 15738955 (Version 1)
Quarter: 2018Q4

REPORT INFORMATION
  Report Type: Spontaneous
  Country: FR (occurrence: FR)
  Receive Date: 20181219
  Receipt Date: 20181219
  Transmission Date: 20190205
  Serious: Yes (Life-Threatening, Hospitalization)
  Sender: FDA-Public Use
  Company Number: FR-BAYER-2018-232562

PATIENT
  Age: 38 Year
  Sex: Female

DRUGS (1)
  1. KYLEENA [Suspect]
     Active Substance: LEVONORGESTREL
     Dosage: 17.5 MCG/24HR, CONT
     Route: 015
     Dates: start: 20180921

REACTIONS (6)
  - Confusional state [None]
  - Skin exfoliation [None]
  - Pruritus [None]
  - Eye pruritus [None]
  - Back pain [None]
  - Toxic epidermal necrolysis [None]

NARRATIVE: CASE EVENT DATE: 201810
